FAERS Safety Report 20194421 (Version 1)
Quarter: 2021Q4

REPORT INFORMATION
  Report Type: Spontaneous
  Country: JP (occurrence: JP)
  Receive Date: 20211216
  Receipt Date: 20211216
  Transmission Date: 20220303
  Serious: Yes (Other)
  Sender: FDA-Public Use
  Company Number: JP-ABBVIE-21K-087-4195377-00

PATIENT
  Age: 6 Year
  Sex: Female

DRUGS (2)
  1. VALPROATE [Suspect]
     Active Substance: VALPROIC ACID
     Indication: Epilepsy
     Dosage: 30.4 MG/KG
     Route: 065
  2. CLOBAZAM [Concomitant]
     Active Substance: CLOBAZAM
     Indication: Product used for unknown indication

REACTIONS (4)
  - Intellectual disability [Recovered/Resolved]
  - Motor dysfunction [Recovered/Resolved]
  - Feeding disorder [Recovered/Resolved]
  - Carnitine deficiency [Recovered/Resolved]
